FAERS Safety Report 10315036 (Version 2)
Quarter: 2014Q3

REPORT INFORMATION
  Report Type: Report from Study
  Country: CA (occurrence: CA)
  Receive Date: 20140718
  Receipt Date: 20140718
  Transmission Date: 20150326
  Serious: Yes (Other)
  Sender: FDA-Public Use
  Company Number: PHHY2012CA003415

PATIENT
  Age: 42 Year
  Sex: Female
  Weight: 97.96 kg

DRUGS (6)
  1. BACLOFEN. [Concomitant]
     Active Substance: BACLOFEN
     Dosage: UNK UKN, UNK
     Dates: start: 20040726
  2. TIZANIDINE [Concomitant]
     Active Substance: TIZANIDINE
     Dosage: UNK UKN, UNK
     Dates: start: 20091110
  3. SYNTHROID [Concomitant]
     Active Substance: LEVOTHYROXINE SODIUM
     Dosage: UNK UKN, UNK
  4. LYRICA [Concomitant]
     Active Substance: PREGABALIN
     Dosage: UNK UKN, UNK
     Dates: start: 20130704
  5. EXTAVIA [Suspect]
     Active Substance: INTERFERON BETA-1B
     Indication: RELAPSING-REMITTING MULTIPLE SCLEROSIS
     Dosage: 8 MIU, QOD
     Route: 058
     Dates: start: 20110910, end: 20140111
  6. MIRAPEX [Concomitant]
     Active Substance: PRAMIPEXOLE DIHYDROCHLORIDE
     Dosage: UNK UKN, UNK
     Dates: start: 20130404

REACTIONS (21)
  - Injection site discolouration [Not Recovered/Not Resolved]
  - Injection site pruritus [Not Recovered/Not Resolved]
  - Rash [Recovered/Resolved]
  - Pain [Unknown]
  - Injection site bruising [Not Recovered/Not Resolved]
  - Generalised erythema [Not Recovered/Not Resolved]
  - Contusion [Not Recovered/Not Resolved]
  - Nasal congestion [Unknown]
  - Injection site erythema [Unknown]
  - Allergic oedema [Recovered/Resolved]
  - Application site swelling [Unknown]
  - Flushing [Recovered/Resolved]
  - Bursitis [Unknown]
  - Drug hypersensitivity [Unknown]
  - Injection site mass [Unknown]
  - Erythema [Recovered/Resolved]
  - Influenza [Unknown]
  - Urticaria [Recovered/Resolved]
  - Pruritus [Recovered/Resolved]
  - Muscle strain [Unknown]
  - Cough [Unknown]

NARRATIVE: CASE EVENT DATE: 201109
